FAERS Safety Report 6818179-0 (Version None)
Quarter: 2010Q3

REPORT INFORMATION
  Report Type: 
  Country: None (occurrence: None)
  Receive Date: 20100706
  Receipt Date: 20070417
  Transmission Date: 20110219
  Serious: Yes (Other)
  Sender: FDA-Public Use
  Company Number: US-PFIZER INC-2007031136

PATIENT
  Sex: Male
  Weight: 102.27 kg

DRUGS (7)
  1. AZITHROMYCIN [Suspect]
     Indication: PNEUMONIA
     Dates: start: 20070301
  2. AZITHROMYCIN [Suspect]
     Dates: start: 20070301, end: 20070401
  3. TAMSULOSIN HCL [Concomitant]
  4. PREVACID [Concomitant]
  5. AVODART [Concomitant]
  6. TOPROL-XL [Concomitant]
  7. WARFARIN [Concomitant]

REACTIONS (2)
  - DEAFNESS [None]
  - DRUG INEFFECTIVE [None]
